FAERS Safety Report 20864108 (Version 3)
Quarter: 2022Q3

REPORT INFORMATION
  Report Type: Spontaneous
  Country: AT (occurrence: AT)
  Receive Date: 20220523
  Receipt Date: 20220708
  Transmission Date: 20221027
  Serious: Yes (Other)
  Sender: FDA-Public Use
  Company Number: AT-CELLTRION INC.-2022AT007118

PATIENT

DRUGS (8)
  1. RITUXIMAB [Interacting]
     Active Substance: RITUXIMAB
     Indication: Prophylaxis
     Route: 065
  2. CARFILZOMIB [Interacting]
     Active Substance: CARFILZOMIB
     Indication: Prophylaxis
     Route: 065
  3. VAXZEVRIA [Interacting]
     Active Substance: AZD-1222
     Indication: COVID-19 immunisation
     Dosage: UNK, NEXT DOSE ON 02/JUL/2021
     Route: 065
     Dates: start: 20210505
  4. DEXAMETHASONE [Interacting]
     Active Substance: DEXAMETHASONE
     Indication: Prophylaxis
     Route: 065
  5. COMIRNATY [Interacting]
     Active Substance: TOZINAMERAN
     Indication: COVID-19 immunisation
     Dosage: UNK, NEXT DOSE ON 03/FEB/2021
     Route: 065
     Dates: start: 20210111
  6. POMALIDOMIDE [Interacting]
     Active Substance: POMALIDOMIDE
     Indication: Prophylaxis
     Dosage: 2 MG, QD
     Route: 065
     Dates: start: 201712, end: 20210420
  7. BORTEZOMIB [Concomitant]
     Active Substance: BORTEZOMIB
     Indication: Prophylaxis
  8. LENALIDOMIDE [Concomitant]
     Active Substance: LENALIDOMIDE
     Indication: Prophylaxis

REACTIONS (6)
  - SARS-CoV-2 antibody test negative [Unknown]
  - SARS-CoV-2 antibody test negative [Unknown]
  - Hypogammaglobulinaemia [Unknown]
  - Vaccination failure [Unknown]
  - Drug interaction [Unknown]
  - Off label use [Unknown]
